FAERS Safety Report 23602697 (Version 2)
Quarter: 2024Q1

REPORT INFORMATION
  Report Type: Spontaneous
  Country: JP (occurrence: JP)
  Receive Date: 20240306
  Receipt Date: 20240307
  Transmission Date: 20240409
  Serious: Yes (Disabling)
  Sender: FDA-Public Use
  Company Number: JP-Eisai-202213064_HAL_P_1

PATIENT
  Age: 80 Year
  Sex: Female
  Weight: 46.5 kg

DRUGS (3)
  1. HALAVEN [Suspect]
     Active Substance: ERIBULIN MESYLATE
     Indication: Uterine leiomyosarcoma
     Dosage: DOSE UNKNOWN
     Route: 042
     Dates: start: 20221029
  2. HALAVEN [Suspect]
     Active Substance: ERIBULIN MESYLATE
     Dosage: UNKNOWN DOSE
     Route: 042
     Dates: start: 20221112
  3. HALAVEN [Suspect]
     Active Substance: ERIBULIN MESYLATE
     Dosage: UNKNOWN DOSE
     Route: 042
     Dates: start: 20221215

REACTIONS (1)
  - Conjunctival oedema [Not Recovered/Not Resolved]

NARRATIVE: CASE EVENT DATE: 20230105
